FAERS Safety Report 19036100 (Version 3)
Quarter: 2021Q2

REPORT INFORMATION
  Report Type: Other
  Country: CA (occurrence: CA)
  Receive Date: 20210321
  Receipt Date: 20210426
  Transmission Date: 20210717
  Serious: No
  Sender: FDA-Public Use
  Company Number: CA-ROCHE-2791699

PATIENT
  Age: 25 Year
  Sex: Male

DRUGS (3)
  1. TYLENOL [Concomitant]
     Active Substance: ACETAMINOPHEN
  2. OCREVUS [Suspect]
     Active Substance: OCRELIZUMAB
     Route: 042
     Dates: start: 20200813
  3. OCREVUS [Suspect]
     Active Substance: OCRELIZUMAB
     Indication: RELAPSING-REMITTING MULTIPLE SCLEROSIS
     Dosage: CONCENTRATE FOR INTRAVENOUS INFUSION?300 MG AT DAY 0 AND 14, THEN 600 MG EVERY 6 MONTH
     Route: 042
     Dates: start: 20200813

REACTIONS (9)
  - Bone contusion [Recovering/Resolving]
  - Skin infection [Recovered/Resolved]
  - Rash [Not Recovered/Not Resolved]
  - Neck pain [Recovering/Resolving]
  - Back pain [Recovering/Resolving]
  - Inflammation [Not Recovered/Not Resolved]
  - Road traffic accident [Unknown]
  - Sexually transmitted disease [Unknown]
  - Herpes simplex [Recovered/Resolved]

NARRATIVE: CASE EVENT DATE: 20210312
